FAERS Safety Report 25243101 (Version 1)
Quarter: 2025Q2

REPORT INFORMATION
  Report Type: Spontaneous
  Country: CN (occurrence: CN)
  Receive Date: 20250428
  Receipt Date: 20250428
  Transmission Date: 20250717
  Serious: Yes (Hospitalization)
  Sender: BEIGENE
  Company Number: CN-BEIGENE-BGN-2025-006481

PATIENT
  Age: 69 Year
  Weight: 48 kg

DRUGS (1)
  1. TISLELIZUMAB [Suspect]
     Active Substance: TISLELIZUMAB
     Indication: Lung neoplasm malignant

REACTIONS (2)
  - Immune-mediated hepatic disorder [Recovering/Resolving]
  - Immune-mediated renal disorder [Recovering/Resolving]
